FAERS Safety Report 4447026-X (Version None)
Quarter: 2004Q3

REPORT INFORMATION
  Report Type: 
  Country: None (occurrence: None)
  Receive Date: 20040812
  Receipt Date: 20040429
  Transmission Date: 20050211
  Serious: No
  Sender: FDA-Public Use
  Company Number: US_0404102644

PATIENT
  Age: 61 Year
  Sex: Male

DRUGS (5)
  1. CIALIS [Suspect]
     Indication: ERECTILE DYSFUNCTION
     Dosage: 20 MG
     Dates: start: 20040101
  2. ALLERGY MEDICATION [Concomitant]
  3. DETROL [Concomitant]
  4. RITALIN [Concomitant]
  5. MULTI-VITAMIN [Concomitant]

REACTIONS (7)
  - DISORIENTATION [None]
  - DIZZINESS [None]
  - DRUG INEFFECTIVE [None]
  - DYSPHAGIA [None]
  - FLUSHING [None]
  - INSOMNIA [None]
  - STOMACH DISCOMFORT [None]
